FAERS Safety Report 7569569-2 (Version None)
Quarter: 2011Q2

REPORT INFORMATION
  Report Type: 
  Country: None (occurrence: None)
  Receive Date: 20110622
  Receipt Date: 20110622
  Transmission Date: 20111010
  Serious: No
  Sender: FDA-Public Use
  Company Number: None

PATIENT
  Age: 36 Year
  Sex: Male
  Weight: 95.2554 kg

DRUGS (1)
  1. LITHIUM CARBONATE CAP [Suspect]
     Indication: BIPOLAR I DISORDER
     Dosage: 2 CAPSULES 3 TIMES A DAY PO
     Route: 048
     Dates: start: 20100622, end: 20110518

REACTIONS (2)
  - PSORIASIS [None]
  - QUALITY OF LIFE DECREASED [None]
